FAERS Safety Report 8234232-1 (Version None)
Quarter: 2012Q1

REPORT INFORMATION
  Report Type: 
  Country: None (occurrence: None)
  Receive Date: 20120326
  Receipt Date: 20120319
  Transmission Date: 20120608
  Serious: Yes (Life-Threatening, Hospitalization, Disabling)
  Sender: FDA-Public Use
  Company Number: US-BAYER-2011-037173

PATIENT
  Age: 26 Year
  Sex: Female
  Weight: 82 kg

DRUGS (6)
  1. PILLS FOR MOUNTAIN SICKNESS [Concomitant]
     Indication: MOUNTAIN SICKNESS ACUTE
     Dosage: AS NEEDED
     Dates: start: 20100701, end: 20100706
  2. YASMIN [Suspect]
     Indication: CONTRACEPTION
     Dosage: UNK
     Dates: start: 20090801, end: 20100701
  3. YAZ [Suspect]
     Indication: PRODUCT USED FOR UNKNOWN INDICATION
  4. ASPIRIN [Concomitant]
  5. IBUPROFEN [Concomitant]
  6. PILLS FOR ELEVATION SICKNESS [Concomitant]

REACTIONS (20)
  - VISUAL IMPAIRMENT [None]
  - SUPERIOR SAGITTAL SINUS THROMBOSIS [None]
  - PAIN [None]
  - SYNCOPE [None]
  - FATIGUE [None]
  - ANHEDONIA [None]
  - QUALITY OF LIFE DECREASED [None]
  - MENTAL IMPAIRMENT [None]
  - ASTHENIA [None]
  - GENERAL PHYSICAL HEALTH DETERIORATION [None]
  - CEREBRAL VENOUS THROMBOSIS [None]
  - PARALYSIS [None]
  - EMOTIONAL DISTRESS [None]
  - CONVULSION [None]
  - HEADACHE [None]
  - VOMITING [None]
  - PARAESTHESIA [None]
  - HYPOAESTHESIA [None]
  - MOTOR DYSFUNCTION [None]
  - ANXIETY [None]
